FAERS Safety Report 18382570 (Version 1)
Quarter: 2020Q4

REPORT INFORMATION
  Report Type: Spontaneous
  Country: US (occurrence: US)
  Receive Date: 20201013
  Receipt Date: 20201013
  Transmission Date: 20210114
  Serious: No
  Sender: FDA-Public Use
  Company Number: None

PATIENT
  Age: 38 Year
  Sex: Female
  Weight: 63.1 kg

DRUGS (7)
  1. PERCOCET [Concomitant]
     Active Substance: ACETAMINOPHEN\OXYCODONE HYDROCHLORIDE
  2. BENLYSTA [Suspect]
     Active Substance: BELIMUMAB
     Indication: SYSTEMIC LUPUS ERYTHEMATOSUS
     Route: 058
     Dates: start: 20200617
  3. ZOLPIDEM [Concomitant]
     Active Substance: ZOLPIDEM TARTRATE
  4. ESCITALOPRAM [Concomitant]
     Active Substance: ESCITALOPRAM OXALATE
  5. PYRIDOXINE [Concomitant]
     Active Substance: PYRIDOXINE
  6. ONDANSETRON [Concomitant]
     Active Substance: ONDANSETRON
  7. TIZANIDINE. [Concomitant]
     Active Substance: TIZANIDINE

REACTIONS (1)
  - Alopecia [None]

NARRATIVE: CASE EVENT DATE: 20201008
